FAERS Safety Report 11336337 (Version 3)
Quarter: 2016Q2

REPORT INFORMATION
  Report Type: Spontaneous
  Country: US (occurrence: US)
  Receive Date: 20150804
  Receipt Date: 20160530
  Transmission Date: 20160815
  Serious: Yes (Other)
  Sender: FDA-Public Use
  Company Number: US-ASTRAZENECA-2015SE72446

PATIENT
  Age: 28546 Day
  Sex: Female
  Weight: 61.2 kg

DRUGS (14)
  1. LOSARTAN. [Concomitant]
     Active Substance: LOSARTAN
     Indication: HYPERTENSION
     Route: 048
  2. ALPRAZOLAM. [Concomitant]
     Active Substance: ALPRAZOLAM
     Indication: ANXIETY
     Route: 048
  3. PREDNISONE. [Concomitant]
     Active Substance: PREDNISONE
     Indication: DYSPNOEA
     Route: 048
  4. CIPRO [Concomitant]
     Active Substance: CIPROFLOXACIN HYDROCHLORIDE
     Dosage: TAKE 1 TABLET (500 MG TOTAL) BY MOUTH 2 TIMES DAILY FOR 10 DAYS
     Route: 048
  5. TUDORZA PRESSAIR [Suspect]
     Active Substance: ACLIDINIUM BROMIDE
     Indication: CHRONIC OBSTRUCTIVE PULMONARY DISEASE
     Dosage: 400MCG, 1 PUFF TWICE A DAY
     Route: 055
     Dates: start: 201405
  6. LOVASTATIN. [Concomitant]
     Active Substance: LOVASTATIN
     Indication: BLOOD CHOLESTEROL ABNORMAL
     Route: 048
  7. CELEXA [Concomitant]
     Active Substance: CITALOPRAM HYDROBROMIDE
     Route: 048
     Dates: start: 20150803, end: 20150813
  8. BROVANA [Concomitant]
     Active Substance: ARFORMOTEROL TARTRATE
     Indication: DYSPNOEA
     Dosage: TAKE 15 MEG BY NEBULIZATION EVERY 12 HOURS AS NEEDED
     Route: 055
  9. ALPRAZOLAM. [Concomitant]
     Active Substance: ALPRAZOLAM
     Indication: ANXIETY
     Route: 048
  10. PREDNISONE. [Concomitant]
     Active Substance: PREDNISONE
     Indication: DYSPNOEA
     Dosage: FOR 10 YEARS AND TAKES 20MG SOMETIMES OR 10 MG
     Route: 048
  11. PULMICORT FLEXHALER [Suspect]
     Active Substance: BUDESONIDE
     Indication: DYSPNOEA
     Dosage: 0.5MG/2ML, TWO TIMES A DAY
     Route: 055
  12. LEVOTHYROXINE. [Concomitant]
     Active Substance: LEVOTHYROXINE
     Indication: THYROID DISORDER
     Route: 048
  13. FLUNISOLIDE. [Concomitant]
     Active Substance: FLUNISOLIDE
     Dosage: 25 MCG/ACT, 2 SPRAYS BY NASAL ROUTE EVERY 12 HOURS
  14. CALCIUM CARBONATE-VIT D- [Concomitant]
     Dosage: 600MG/200IU, TWICE DAILY
     Route: 048

REACTIONS (30)
  - Autoimmune thyroiditis [Unknown]
  - Amnesia [Unknown]
  - Sleep disorder [Unknown]
  - Gait disturbance [Unknown]
  - Product quality issue [Unknown]
  - Confusional state [Unknown]
  - Pollakiuria [Unknown]
  - Fatigue [Unknown]
  - Upper-airway cough syndrome [Unknown]
  - Hypercholesterolaemia [Unknown]
  - Bronchitis chronic [Unknown]
  - Cardiac disorder [Recovered/Resolved]
  - Blood pressure increased [Recovered/Resolved]
  - Cystitis [Unknown]
  - Dyspnoea [Not Recovered/Not Resolved]
  - Tremor [Unknown]
  - Hypertension [Unknown]
  - Device use error [Unknown]
  - Cataract [Unknown]
  - Bronchial disorder [Not Recovered/Not Resolved]
  - Chronic obstructive pulmonary disease [Unknown]
  - Urticaria [Unknown]
  - Abdominal distension [Unknown]
  - Urinary tract infection [Unknown]
  - Anxiety [Unknown]
  - Insomnia [Unknown]
  - Decreased appetite [Unknown]
  - Cognitive disorder [Unknown]
  - Disturbance in attention [Unknown]
  - Hyperlipidaemia [Unknown]

NARRATIVE: CASE EVENT DATE: 20140414
